FAERS Safety Report 4424193-5 (Version None)
Quarter: 2004Q3

REPORT INFORMATION
  Report Type: 
  Country: None (occurrence: None)
  Receive Date: 20040812
  Receipt Date: 20040709
  Transmission Date: 20050211
  Serious: Yes (Death)
  Sender: FDA-Public Use
  Company Number: 200412284JP

PATIENT
  Age: 36 Year
  Sex: Male
  Weight: 63 kg

DRUGS (11)
  1. LASIX [Suspect]
     Indication: POLYURIA
     Route: 041
     Dates: start: 20040426, end: 20040503
  2. MODACIN [Suspect]
     Indication: INFECTION
     Route: 041
     Dates: start: 20040427, end: 20040428
  3. MEROPEN [Suspect]
     Indication: INFECTION
     Route: 041
     Dates: start: 20040428, end: 20040506
  4. ADONA [Concomitant]
     Indication: MELAENA
     Route: 042
     Dates: start: 20040426, end: 20040506
  5. TRANSAMIN [Concomitant]
     Indication: MELAENA
     Route: 042
     Dates: start: 20040426, end: 20040506
  6. OMEPRAL [Concomitant]
     Indication: GASTROINTESTINAL HAEMORRHAGE
     Route: 042
     Dates: start: 20040426, end: 20040516
  7. MORPHINE HYDROCHLORIDE [Concomitant]
     Indication: PAIN
     Dosage: DOSE: 30-80-160-240
     Route: 041
     Dates: start: 20040412, end: 20040516
  8. AMINO ACID INJ [Concomitant]
     Indication: MARKEDLY REDUCED DIETARY INTAKE
     Route: 041
     Dates: start: 20040412, end: 20040516
  9. 50% GLUCOSE [Concomitant]
     Indication: MARKEDLY REDUCED DIETARY INTAKE
     Route: 041
     Dates: start: 20040425, end: 20040516
  10. NEOLAMIN MULTI [Concomitant]
     Indication: MARKEDLY REDUCED DIETARY INTAKE
     Dosage: DOSE: 1V
     Route: 041
     Dates: start: 20040412, end: 20040516
  11. SOLDEM 3A [Concomitant]
     Route: 041
     Dates: start: 20040413, end: 20040507

REACTIONS (11)
  - BLOOD CALCIUM DECREASED [None]
  - DERMATITIS EXFOLIATIVE [None]
  - ERYTHEMA [None]
  - EXCORIATION [None]
  - GRAFT VERSUS HOST DISEASE [None]
  - HAEMORRHAGE [None]
  - PARAESTHESIA [None]
  - PRURITUS GENERALISED [None]
  - PYREXIA [None]
  - STAPHYLOCOCCAL INFECTION [None]
  - TOXIC EPIDERMAL NECROLYSIS [None]
